FAERS Safety Report 20947188 (Version 1)
Quarter: 2022Q2

REPORT INFORMATION
  Report Type: Spontaneous
  Country: DE (occurrence: DE)
  Receive Date: 20220610
  Receipt Date: 20220610
  Transmission Date: 20220720
  Serious: Yes (Death, Other)
  Sender: FDA-Public Use
  Company Number: DE-ELI_LILLY_AND_COMPANY-DE202203008609

PATIENT
  Age: 59 Year
  Sex: Female
  Weight: 61 kg

DRUGS (5)
  1. RAMUCIRUMAB [Suspect]
     Active Substance: RAMUCIRUMAB
     Indication: Lung cancer metastatic
     Dosage: 6 MG/KG (600MG), UNKNOWN
     Route: 065
     Dates: start: 20220303
  2. RAMUCIRUMAB [Suspect]
     Active Substance: RAMUCIRUMAB
     Indication: Metastases to liver
  3. DOCETAXEL [Suspect]
     Active Substance: DOCETAXEL
     Indication: Lung neoplasm malignant
     Dosage: 100 MG, UNKNOWN
     Route: 065
     Dates: start: 20220303
  4. DOCETAXEL [Suspect]
     Active Substance: DOCETAXEL
     Indication: Metastases to liver
  5. ELIQUIS [Concomitant]
     Active Substance: APIXABAN
     Indication: Pulmonary embolism
     Dosage: 5 MG, BID

REACTIONS (12)
  - Death [Fatal]
  - Renal failure [Unknown]
  - Shock [Unknown]
  - Oesophageal rupture [Unknown]
  - Sepsis [Recovering/Resolving]
  - Gastrointestinal haemorrhage [Recovering/Resolving]
  - Thrombocytopenia [Recovering/Resolving]
  - Pancytopenia [Recovering/Resolving]
  - Dyspnoea exertional [Recovering/Resolving]
  - White blood cell count decreased [Recovering/Resolving]
  - Electrolyte imbalance [Unknown]
  - Abdominal pain [Recovering/Resolving]

NARRATIVE: CASE EVENT DATE: 20220307
